FAERS Safety Report 8096216-6 (Version None)
Quarter: 2012Q1

REPORT INFORMATION
  Report Type: 
  Country: None (occurrence: None)
  Receive Date: 20120129
  Receipt Date: 20111221
  Transmission Date: 20120608
  Serious: No
  Sender: FDA-Public Use
  Company Number: US-ABBOTT-11P-163-0885765-00

PATIENT
  Age: 59 Year
  Sex: Female

DRUGS (6)
  1. HUMIRA [Suspect]
     Indication: COLITIS MICROSCOPIC
     Dates: start: 20110728
  2. GABAPENTIN [Concomitant]
     Indication: PAIN
     Dates: start: 20111101
  3. CELEXA [Concomitant]
     Indication: ANTIDEPRESSANT THERAPY
  4. CELEBREX [Concomitant]
     Indication: ARTHRITIS
  5. ZOCOR [Concomitant]
     Indication: BLOOD CHOLESTEROL INCREASED
  6. BACLOFEN [Concomitant]
     Indication: MUSCLE RELAXANT THERAPY

REACTIONS (2)
  - DIARRHOEA [None]
  - PAIN [None]
